FAERS Safety Report 20794421 (Version 2)
Quarter: 2022Q2

REPORT INFORMATION
  Report Type: Spontaneous
  Country: KR (occurrence: KR)
  Receive Date: 20220506
  Receipt Date: 20220608
  Transmission Date: 20220720
  Serious: No
  Sender: FDA-Public Use
  Company Number: KR-PFIZER INC-202200564662

PATIENT
  Age: 6 Year

DRUGS (1)
  1. GENOTROPIN [Suspect]
     Active Substance: SOMATROPIN
     Indication: Growth hormone deficiency
     Dosage: 6 TIMES/WEEK
     Dates: start: 20200828

REACTIONS (2)
  - Poor quality device used [Unknown]
  - Device leakage [Unknown]
